FAERS Safety Report 8142043-0 (Version None)
Quarter: 2012Q1

REPORT INFORMATION
  Report Type: 
  Country: None (occurrence: None)
  Receive Date: 20120216
  Receipt Date: 20120213
  Transmission Date: 20120608
  Serious: Yes (Other)
  Sender: FDA-Public Use
  Company Number: US-MERCK-1107USA02176

PATIENT
  Age: 60 Year
  Sex: Male
  Weight: 98 kg

DRUGS (6)
  1. FOSAPREPITANT DIMEGLUMINE [Suspect]
     Indication: PROPHYLAXIS OF NAUSEA AND VOMITING
     Route: 041
     Dates: start: 20110711, end: 20110711
  2. EMEND [Suspect]
     Indication: PROPHYLAXIS OF NAUSEA AND VOMITING
     Route: 048
     Dates: start: 20110701
  3. CISPLATIN [Concomitant]
     Route: 042
     Dates: start: 20110711, end: 20110711
  4. FOSAPREPITANT DIMEGLUMINE [Suspect]
     Route: 041
     Dates: start: 20110613
  5. FLUOROURACIL [Concomitant]
     Indication: NEOPLASM MALIGNANT
     Route: 042
     Dates: start: 20110711, end: 20110716
  6. TRASTUZUMAB [Concomitant]
     Route: 042
     Dates: start: 20110711, end: 20110711

REACTIONS (6)
  - FLANK PAIN [None]
  - ERYTHEMA [None]
  - BACK PAIN [None]
  - FLUSHING [None]
  - DYSPNOEA [None]
  - BLOOD PRESSURE INCREASED [None]
